FAERS Safety Report 24352141 (Version 1)
Quarter: 2024Q3

REPORT INFORMATION
  Report Type: Spontaneous
  Country: US (occurrence: US)
  Receive Date: 20240923
  Receipt Date: 20240923
  Transmission Date: 20241017
  Serious: No
  Sender: BAYER
  Company Number: US-BAYER-2024A134197

PATIENT
  Age: 33 Year
  Sex: Female

DRUGS (1)
  1. ALEVE BACK AND MUSCLE PAIN [Suspect]
     Active Substance: NAPROXEN SODIUM
     Indication: Pain
     Dosage: USED 2 FOR THE DAY
     Route: 048
     Dates: start: 2024, end: 202409

REACTIONS (1)
  - Expired product administered [Unknown]
